FAERS Safety Report 24463542 (Version 1)
Quarter: 2024Q4

REPORT INFORMATION
  Report Type: Report from Study
  Country: US (occurrence: US)
  Receive Date: 20241018
  Receipt Date: 20241018
  Transmission Date: 20250115
  Serious: No
  Sender: ROCHE
  Company Number: US-ROCHE-3207409

PATIENT
  Age: 58 Year
  Sex: Male
  Weight: 109.0 kg

DRUGS (9)
  1. XOLAIR [Suspect]
     Active Substance: OMALIZUMAB
     Indication: Asthma
     Dosage: LAST INJECTION DATE: 19/APR/2023
     Route: 058
  2. XOLAIR [Suspect]
     Active Substance: OMALIZUMAB
     Indication: Asthma
  3. XOLAIR [Suspect]
     Active Substance: OMALIZUMAB
     Indication: Chronic sinusitis
  4. XOLAIR [Suspect]
     Active Substance: OMALIZUMAB
     Indication: Seasonal allergy
  5. SYMBICORT [Concomitant]
     Active Substance: BUDESONIDE\FORMOTEROL FUMARATE DIHYDRATE
     Route: 065
  6. ALBUTEROL SULFATE [Concomitant]
     Active Substance: ALBUTEROL SULFATE
     Route: 065
  7. MONTELUKAST [Concomitant]
     Active Substance: MONTELUKAST
  8. METFORMIN [Concomitant]
     Active Substance: METFORMIN HYDROCHLORIDE
  9. GLIPIZIDE [Concomitant]
     Active Substance: GLIPIZIDE

REACTIONS (7)
  - Off label use [Unknown]
  - Lower respiratory tract congestion [Unknown]
  - Productive cough [Unknown]
  - Nasal polyps [Unknown]
  - Bronchiectasis [Unknown]
  - Gastrooesophageal reflux disease [Unknown]
  - Hypertension [Unknown]
